FAERS Safety Report 12800435 (Version 1)
Quarter: 2016Q3

REPORT INFORMATION
  Report Type: Spontaneous
  Country: US (occurrence: US)
  Receive Date: 20160930
  Receipt Date: 20160930
  Transmission Date: 20161109
  Serious: No
  Sender: FDA-Public Use
  Company Number: US-009507513-1609USA013444

PATIENT
  Age: 36 Year
  Sex: Female
  Weight: 110.2 kg

DRUGS (1)
  1. NEXPLANON [Suspect]
     Active Substance: ETONOGESTREL
     Dosage: 1 DF, 68 MG/ THREE YEARS
     Route: 059
     Dates: start: 201403, end: 20160927

REACTIONS (3)
  - Device breakage [Recovered/Resolved]
  - Female sterilisation [Unknown]
  - Migration of implanted drug [Recovered/Resolved]

NARRATIVE: CASE EVENT DATE: 20160927
